FAERS Safety Report 24406856 (Version 1)
Quarter: 2024Q4

REPORT INFORMATION
  Report Type: Spontaneous
  Country: US (occurrence: US)
  Receive Date: 20241007
  Receipt Date: 20241007
  Transmission Date: 20250115
  Serious: Yes (Hospitalization)
  Sender: AMGEN
  Company Number: US-AMGEN-USASP2024194498

PATIENT
  Age: 76 Year
  Sex: Male

DRUGS (8)
  1. PREDNISONE [Suspect]
     Active Substance: PREDNISONE
     Indication: Rheumatoid arthritis
     Dosage: UNK
     Route: 065
  2. PREDNISONE [Suspect]
     Active Substance: PREDNISONE
     Indication: Asthma
  3. METHOTREXATE [Concomitant]
     Active Substance: METHOTREXATE
     Indication: Rheumatoid arthritis
     Dosage: UNK
  4. METHOTREXATE [Concomitant]
     Active Substance: METHOTREXATE
     Indication: Asthma
  5. BUDESONIDE [Concomitant]
     Active Substance: BUDESONIDE
     Indication: Rheumatoid arthritis
     Dosage: UNK
  6. BUDESONIDE [Concomitant]
     Active Substance: BUDESONIDE
     Indication: Asthma
  7. OMALIZUMAB [Concomitant]
     Active Substance: OMALIZUMAB
     Indication: Rheumatoid arthritis
     Dosage: UNK
  8. OMALIZUMAB [Concomitant]
     Active Substance: OMALIZUMAB
     Indication: Asthma

REACTIONS (2)
  - Rheumatoid arthritis-associated interstitial lung disease [Unknown]
  - Blood immunoglobulin E increased [Unknown]
